FAERS Safety Report 5429232-0 (Version None)
Quarter: 2007Q3

REPORT INFORMATION
  Report Type: 
  Country: None (occurrence: None)
  Receive Date: 20070829
  Receipt Date: 20070808
  Transmission Date: 20080115
  Serious: Yes (Other)
  Sender: FDA-Public Use
  Company Number: JP-JNJFOC-20061206747

PATIENT
  Sex: Female
  Weight: 39 kg

DRUGS (8)
  1. REMICADE [Suspect]
     Route: 042
  2. REMICADE [Suspect]
     Route: 042
  3. REMICADE [Suspect]
     Indication: RHEUMATOID ARTHRITIS
     Route: 042
  4. VOLTAREN [Suspect]
     Indication: RHEUMATOID ARTHRITIS
     Route: 054
  5. SELBEX [Suspect]
     Indication: GASTROINTESTINAL DISORDER THERAPY
     Route: 048
  6. ACTONEL [Suspect]
     Indication: OSTEOPOROSIS
     Route: 048
  7. ONEALFA [Suspect]
     Indication: OSTEOPOROSIS
     Route: 048
  8. PREDNISOLONE [Concomitant]
     Indication: RHEUMATOID ARTHRITIS
     Route: 048

REACTIONS (4)
  - CELLULITIS [None]
  - DRUG ERUPTION [None]
  - ERYTHEMA [None]
  - VASCULITIS [None]
